FAERS Safety Report 7551354-9 (Version None)
Quarter: 2011Q2

REPORT INFORMATION
  Report Type: 
  Country: None (occurrence: None)
  Receive Date: 20110616
  Receipt Date: 20110609
  Transmission Date: 20111010
  Serious: Yes (Life-Threatening, Other)
  Sender: FDA-Public Use
  Company Number: DE-GENZYME-POMP-1001308

PATIENT
  Sex: Female

DRUGS (1)
  1. MYOZYME [Suspect]
     Indication: GLYCOGEN STORAGE DISEASE TYPE II
     Dosage: 1500 MG, Q2W
     Route: 042

REACTIONS (4)
  - PULMONARY EMBOLISM [None]
  - TACHYCARDIA [None]
  - DYSPNOEA [None]
  - CYANOSIS [None]
